FAERS Safety Report 8841143 (Version 1)
Quarter: 2012Q4

REPORT INFORMATION
  Report Type: Report from Study
  Country: AU (occurrence: AU)
  Receive Date: 20121015
  Receipt Date: 20121015
  Transmission Date: 20130627
  Serious: Yes (Hospitalization)
  Sender: FDA-Public Use
  Company Number: AU-CELGENEUS-AZAAU200800312

PATIENT
  Age: 65 Year
  Sex: Male
  Weight: 76 kg

DRUGS (5)
  1. VIDAZA [Suspect]
     Indication: MYELODYSPLASTIC SYNDROME
     Dosage: 75 milligram/sq. meter
     Route: 058
     Dates: start: 20080905
  2. THALIDOMIDE CELGENE [Suspect]
     Indication: MYELODYSPLASTIC SYNDROME
     Dosage: 100 Milligram
     Route: 048
     Dates: start: 20080905
  3. AMLODIPINE [Concomitant]
     Indication: HYPERTENSION
     Route: 048
  4. GLIPIZIDE [Concomitant]
     Indication: DIABETES MELLITUS
     Dosage: 5 Milligram
     Route: 048
  5. GLIPIZIDE [Concomitant]
     Dosage: 10 Milligram
     Route: 048

REACTIONS (2)
  - Tenosynovitis [Not Recovered/Not Resolved]
  - Pyrexia [None]
